FAERS Safety Report 5371514-5 (Version None)
Quarter: 2007Q2

REPORT INFORMATION
  Report Type: 
  Country: None (occurrence: None)
  Receive Date: 20070618
  Receipt Date: 20070110
  Transmission Date: 20071010
  Serious: Yes (Hospitalization)
  Sender: FDA-Public Use
  Company Number: PHEH2007US00757

PATIENT
  Age: 22 Year
  Sex: Female

DRUGS (3)
  1. GLEEVEC [Suspect]
     Indication: CHRONIC MYELOID LEUKAEMIA
     Dosage: 400 MG, QOD, ORAL; NO TREATMENT; 400 MG, QOD, ORAL
     Route: 048
     Dates: start: 20061109, end: 20061129
  2. GLEEVEC [Suspect]
     Indication: CHRONIC MYELOID LEUKAEMIA
     Dosage: 400 MG, QOD, ORAL; NO TREATMENT; 400 MG, QOD, ORAL
     Route: 048
     Dates: start: 20060129, end: 20061211
  3. GLEEVEC [Suspect]
     Indication: CHRONIC MYELOID LEUKAEMIA
     Dosage: 400 MG, QOD, ORAL; NO TREATMENT; 400 MG, QOD, ORAL
     Route: 048
     Dates: start: 20061212, end: 20070110

REACTIONS (4)
  - BLOOD BILIRUBIN INCREASED [None]
  - HEPATITIS ACUTE [None]
  - JAUNDICE [None]
  - LIVER FUNCTION TEST ABNORMAL [None]
